FAERS Safety Report 22363461 (Version 1)
Quarter: 2023Q2

REPORT INFORMATION
  Report Type: Spontaneous
  Country: US (occurrence: US)
  Receive Date: 20230525
  Receipt Date: 20230525
  Transmission Date: 20230721
  Serious: No
  Sender: FDA-Public Use
  Company Number: US-UCBSA-2022046297

PATIENT
  Sex: Female

DRUGS (2)
  1. CIMZIA [Suspect]
     Active Substance: CERTOLIZUMAB PEGOL
     Indication: Rheumatoid arthritis
     Dosage: 400 MILLIGRAM, EV 4 WEEKS
     Route: 058
     Dates: start: 20220621
  2. BD FEN [Concomitant]
     Indication: Product used for unknown indication

REACTIONS (4)
  - Syringe issue [Unknown]
  - Muscle spasms [Unknown]
  - Therapy interrupted [Unknown]
  - Product physical issue [Unknown]
